FAERS Safety Report 9487043 (Version 1)
Quarter: 2013Q3

REPORT INFORMATION
  Report Type: Spontaneous
  Country: US (occurrence: None)
  Receive Date: 20130827
  Receipt Date: 20130827
  Transmission Date: 20140515
  Serious: No
  Sender: FDA-Public Use
  Company Number: DSA_60934_2012

PATIENT
  Age: 37 Year
  Sex: Female

DRUGS (3)
  1. CARDIZEM [Suspect]
     Indication: ATRIAL FLUTTER
     Dosage: DF
  2. FLECAINIDE (FLECAINIDE) [Suspect]
     Indication: ATRIAL FLUTTER
     Dosage: DF
  3. AMIODARONE HYDROCHLORIDE [Suspect]
     Indication: ATRIAL FLUTTER
     Dosage: DF

REACTIONS (1)
  - Maternal exposure during pregnancy [None]
